FAERS Safety Report 8647950 (Version 2)
Quarter: 2014Q1

REPORT INFORMATION
  Report Type: Spontaneous
  Country: US (occurrence: None)
  Receive Date: 20120323
  Receipt Date: 20130305
  Transmission Date: 20141002
  Serious: Yes (Disabling)
  Sender: FDA-Public Use
  Company Number: 163-21880-11100217

PATIENT
  Age: 62 Year
  Sex: Male

DRUGS (6)
  1. LENALIDOMIDE [Suspect]
     Indication: PLASMA CELL MYELOMA
     Dosage: 25 MG, QD X 21 D, 3 WEEKS OFF 4-6 WEEKS, PO
     Route: 048
     Dates: start: 20110601
  2. THALOMID [Suspect]
     Indication: PLASMA CELL MYELOMA
     Dosage: 100 MG, DAILY X 3 WEEKS OF 4, PO
     Route: 048
     Dates: start: 20110601
  3. DEXAMETHASONE [Suspect]
     Indication: PLASMA CELL MYELOMA
     Dosage: 20 MG, ONCE/WEEK
     Dates: start: 20110601
  4. ASPIRIN (ACETYLSALICYLIC ACID) [Concomitant]
  5. MORPHINE [Concomitant]
  6. FENTANYL (FENTANYL) [Concomitant]

REACTIONS (2)
  - Fatigue [None]
  - Joint swelling [None]
